FAERS Safety Report 7534879-1 (Version None)
Quarter: 2011Q2

REPORT INFORMATION
  Report Type: 
  Country: None (occurrence: None)
  Receive Date: 20110609
  Receipt Date: 20081121
  Transmission Date: 20111010
  Serious: Yes (Death, Hospitalization)
  Sender: FDA-Public Use
  Company Number: PHHY2008CA29202

PATIENT
  Sex: Male

DRUGS (1)
  1. ZOMETA [Suspect]
     Indication: LUNG NEOPLASM MALIGNANT
     Dosage: 4 MG EVERY 4 WEEKS
     Route: 042
     Dates: start: 20080923, end: 20081113

REACTIONS (4)
  - DYSPNOEA [None]
  - CARDIAC ARREST [None]
  - COMA [None]
  - PERICARDITIS [None]
